FAERS Safety Report 8219463-9 (Version None)
Quarter: 2012Q1

REPORT INFORMATION
  Report Type: 
  Country: None (occurrence: None)
  Receive Date: 20120319
  Receipt Date: 20120316
  Transmission Date: 20120608
  Serious: No
  Sender: FDA-Public Use
  Company Number: US-PFIZER INC-2012070091

PATIENT
  Sex: Female
  Weight: 76.19 kg

DRUGS (4)
  1. CHANTIX [Suspect]
     Dosage: 1 MG, 2X/DAY
     Route: 048
     Dates: start: 20120301, end: 20120316
  2. CHANTIX [Suspect]
     Indication: SMOKING CESSATION THERAPY
     Dosage: 0.5 MG, 1X/DAY
     Route: 048
     Dates: start: 20120303, end: 20120301
  3. IPRATROPIUM [Concomitant]
     Indication: HYPERSENSITIVITY
     Dosage: UNK
     Route: 045
  4. MIDODRINE [Concomitant]
     Indication: HYPOTENSION
     Dosage: 10 MG, AS NEEDED

REACTIONS (1)
  - BLOOD PRESSURE DECREASED [None]
